FAERS Safety Report 14635831 (Version 1)
Quarter: 2018Q1

REPORT INFORMATION
  Report Type: Spontaneous
  Country: ES (occurrence: ES)
  Receive Date: 20180314
  Receipt Date: 20180314
  Transmission Date: 20180509
  Serious: Yes (Hospitalization)
  Sender: FDA-Public Use
  Company Number: ES-AUROBINDO-AUR-APL-2018-012422

PATIENT
  Sex: Male

DRUGS (3)
  1. ENGERIX-B [Suspect]
     Active Substance: HEPATITIS B VIRUS SUBTYPE ADW2 HBSAG SURFACE PROTEIN ANTIGEN
     Indication: PROPHYLAXIS
     Dosage: UNK
     Route: 065
     Dates: start: 20050429, end: 20050429
  2. ENGERIX-B [Suspect]
     Active Substance: HEPATITIS B VIRUS SUBTYPE ADW2 HBSAG SURFACE PROTEIN ANTIGEN
     Dosage: UNK
     Route: 065
     Dates: start: 20050530, end: 20050530
  3. RAMIPRIL. [Suspect]
     Active Substance: RAMIPRIL
     Indication: PRODUCT USED FOR UNKNOWN INDICATION
     Dosage: UNK
     Route: 065

REACTIONS (18)
  - Adverse reaction [Unknown]
  - Conjunctivitis allergic [Unknown]
  - Dyspepsia [Unknown]
  - Anaphylactoid reaction [Unknown]
  - Back pain [Unknown]
  - Palpitations [Unknown]
  - Arthralgia [Unknown]
  - Asthenia [Unknown]
  - Myocarditis [Unknown]
  - Chest pain [Unknown]
  - Malaise [Unknown]
  - Insomnia [Unknown]
  - Myopathy [Unknown]
  - Dyspnoea exertional [Unknown]
  - Myositis [Unknown]
  - Fatigue [Unknown]
  - Anxiety [Unknown]
  - Throat irritation [Unknown]
